FAERS Safety Report 18185786 (Version 1)
Quarter: 2020Q3

REPORT INFORMATION
  Report Type: Spontaneous
  Country: FR (occurrence: FR)
  Receive Date: 20200824
  Receipt Date: 20200824
  Transmission Date: 20201103
  Serious: Yes (Hospitalization)
  Sender: FDA-Public Use
  Company Number: NVSC2020FR230173

PATIENT
  Age: 46 Year
  Sex: Female

DRUGS (4)
  1. KETOPROFEN. [Suspect]
     Active Substance: KETOPROFEN
     Indication: SCIATICA
     Dosage: 200 MG, QD
     Route: 048
     Dates: start: 20200707
  2. IOPAMIDOL [Suspect]
     Active Substance: IOPAMIDOL
     Indication: IMAGING PROCEDURE
     Dosage: 1 OT, TOTAL
     Route: 065
     Dates: start: 20200708, end: 20200708
  3. KETOPROFEN. [Suspect]
     Active Substance: KETOPROFEN
     Indication: SCIATICA
     Dosage: 200 MG (100MG 2/J)
     Route: 042
     Dates: start: 20200629, end: 20200703
  4. DEXAMETHASONE. [Suspect]
     Active Substance: DEXAMETHASONE
     Indication: IMAGING PROCEDURE
     Dosage: UNK, TOTAL
     Route: 065
     Dates: start: 20200708, end: 20200708

REACTIONS (2)
  - Rash [Recovered/Resolved]
  - Erythema [Recovered/Resolved]

NARRATIVE: CASE EVENT DATE: 20200708
